FAERS Safety Report 21075298 (Version 1)
Quarter: 2022Q3

REPORT INFORMATION
  Report Type: Spontaneous
  Country: US (occurrence: US)
  Receive Date: 20220713
  Receipt Date: 20220713
  Transmission Date: 20221026
  Serious: Yes (Life-Threatening)
  Sender: FDA-Public Use
  Company Number: US-LEO Pharma-343974

PATIENT
  Age: 54 Year
  Sex: Female

DRUGS (5)
  1. ADBRY [Suspect]
     Active Substance: TRALOKINUMAB-LDRM
     Indication: Dermatitis atopic
     Dates: start: 20220624, end: 20220706
  2. DEVICE [Suspect]
     Active Substance: DEVICE
     Indication: Dermatitis atopic
  3. DEVICE [Suspect]
     Active Substance: DEVICE
     Indication: Dermatitis atopic
  4. DEVICE [Suspect]
     Active Substance: DEVICE
     Indication: Dermatitis atopic
  5. DEVICE [Suspect]
     Active Substance: DEVICE
     Indication: Dermatitis atopic

REACTIONS (2)
  - Anaphylactic reaction [Recovered/Resolved]
  - Anaphylactic reaction [Recovered/Resolved]

NARRATIVE: CASE EVENT DATE: 20220625
